FAERS Safety Report 5019705-7 (Version None)
Quarter: 2006Q2

REPORT INFORMATION
  Report Type: 
  Country: None (occurrence: None)
  Receive Date: 20060601
  Receipt Date: 20060518
  Transmission Date: 20061013
  Serious: Yes (Hospitalization)
  Sender: FDA-Public Use
  Company Number: S04-FRA-00519-01

PATIENT
  Age: 44 Year

DRUGS (5)
  1. CITALOPRAM HYDROBROMIDE [Suspect]
     Dosage: 20 MG QD PO
     Route: 048
  2. ACETAMINOPHEN W/ PROPOXYPHENE HCL [Suspect]
  3. CLONAZEPAM [Suspect]
  4. OMEPRAZOLE [Suspect]
     Dosage: 20 MG QD PO
     Route: 048
     Dates: start: 20020910, end: 20030130
  5. LOVENOX [Suspect]
     Indication: PULMONARY EMBOLISM

REACTIONS (3)
  - PARAPLEGIA [None]
  - PULMONARY EMBOLISM [None]
  - THROMBOCYTOPENIA [None]
